FAERS Safety Report 7580753-4 (Version None)
Quarter: 2011Q2

REPORT INFORMATION
  Report Type: 
  Country: None (occurrence: None)
  Receive Date: 20110622
  Receipt Date: 20110607
  Transmission Date: 20111010
  Serious: Yes (Hospitalization, Other)
  Sender: FDA-Public Use
  Company Number: 2011MA006371

PATIENT
  Age: 42 Year
  Sex: Female

DRUGS (2)
  1. LEVOTHYROXINE SODIUM [Concomitant]
  2. CARBAMAZEPINE [Suspect]
     Indication: DEPRESSION
     Dosage: 200 MG;OD

REACTIONS (7)
  - KOILONYCHIA [None]
  - STEVENS-JOHNSON SYNDROME [None]
  - HYPOGEUSIA [None]
  - NIKOLSKY'S SIGN [None]
  - MALAISE [None]
  - LYMPHADENOPATHY [None]
  - HYPOAESTHESIA [None]
